FAERS Safety Report 4380835-4 (Version None)
Quarter: 2004Q2

REPORT INFORMATION
  Report Type: 
  Country: None (occurrence: None)
  Receive Date: 20040616
  Receipt Date: 20040611
  Transmission Date: 20050107
  Serious: Yes (Hospitalization)
  Sender: FDA-Public Use
  Company Number: 200411950GDS

PATIENT
  Age: 63 Year
  Sex: Male

DRUGS (9)
  1. ASPIRIN [Suspect]
     Indication: PROPHYLAXIS
     Dosage: 100 MG, TOTAL DAILY, ORAL
     Route: 048
     Dates: end: 20040528
  2. FLUVOXAMINE [Suspect]
     Indication: DEPRESSION
     Dosage: ORAL
     Route: 048
  3. PHENPROCOUMON [Suspect]
     Indication: PROPHYLAXIS
     Dosage: PRN, ORAL
     Route: 048
     Dates: end: 20040528
  4. DICLOFENAC SODIUM [Suspect]
     Dosage: ORAL
     Route: 048
  5. CLOPIDOGREL BISULFATE [Suspect]
     Indication: PROPHYLAXIS
     Dosage: 75 MG, TOTAL DAILY, ORAL
     Route: 048
     Dates: end: 20040528
  6. MOLSIDOMINE [Concomitant]
  7. PRAVASTATIN [Concomitant]
  8. TORSEMIDE [Concomitant]
  9. ENALAPRIL MALEATE [Concomitant]

REACTIONS (3)
  - ANAEMIA [None]
  - MELAENA [None]
  - PROTHROMBIN TIME PROLONGED [None]
